FAERS Safety Report 6520228-4 (Version None)
Quarter: 2009Q4

REPORT INFORMATION
  Report Type: 
  Country: None (occurrence: None)
  Receive Date: 20091229
  Receipt Date: 20091217
  Transmission Date: 20100525
  Serious: Yes (Other)
  Sender: FDA-Public Use
  Company Number: PHHY2009CA56828

PATIENT
  Sex: Female

DRUGS (8)
  1. ACLASTA/ZOLEDRONATE T29581+A+ [Suspect]
     Indication: OSTEOPOROSIS
     Dosage: YEARLY
     Route: 042
     Dates: start: 20091110, end: 20091110
  2. ZOCOR [Concomitant]
     Dosage: 20 MG/DAY
     Route: 048
  3. SENOKOT                                 /UNK/ [Concomitant]
     Dosage: 8.6 MG, PRN
     Route: 048
  4. HYDROCHLOROTHIAZIDE [Concomitant]
     Dosage: 25 MG/DAY
     Route: 048
  5. MULTIVITAMIN ^LAPPE^ [Concomitant]
     Dosage: 1 TABLET PER DAY
     Route: 048
  6. PANTOLOC ^BYK GULDEN^ [Concomitant]
     Dosage: 40 MG, PRN
     Route: 048
  7. ASPIRIN [Concomitant]
     Dosage: 81 MG/DAY
     Route: 048
  8. VITAMIN D [Concomitant]
     Route: 048

REACTIONS (12)
  - ASTHENIA [None]
  - BEDRIDDEN [None]
  - BURNING SENSATION [None]
  - DIARRHOEA [None]
  - EYE DISORDER [None]
  - FATIGUE [None]
  - FEELING ABNORMAL [None]
  - MALAISE [None]
  - NAUSEA [None]
  - PAIN [None]
  - PYREXIA [None]
  - VOMITING [None]
